FAERS Safety Report 25640109 (Version 2)
Quarter: 2025Q4

REPORT INFORMATION
  Report Type: Spontaneous
  Country: EU (occurrence: EU)
  Receive Date: 20250804
  Receipt Date: 20251020
  Transmission Date: 20260117
  Serious: Yes (Other)
  Sender: BAYER HEALTHCARE PHARMACEUTICALS INC.
  Company Number: EU-BAYER-2025A102294

PATIENT
  Age: 50 Year
  Sex: Female

DRUGS (1)
  1. BETAFERON [Suspect]
     Active Substance: INTERFERON BETA-1B
     Dosage: UNK UNK, QOD
     Dates: start: 202003, end: 2022

REACTIONS (2)
  - Acute macular neuroretinopathy [Recovering/Resolving]
  - Retinopathy [Recovered/Resolved]

NARRATIVE: CASE EVENT DATE: 20220101
